FAERS Safety Report 24882729 (Version 1)
Quarter: 2025Q1

REPORT INFORMATION
  Report Type: Spontaneous
  Country: US (occurrence: US)
  Receive Date: 20250124
  Receipt Date: 20250124
  Transmission Date: 20250409
  Serious: Yes (Other)
  Sender: MYLAN
  Company Number: US-MYLANLABS-2025M1004607

PATIENT
  Age: 73 Year
  Sex: Female

DRUGS (6)
  1. PREDNISONE [Suspect]
     Active Substance: PREDNISONE
     Indication: Acute febrile neutrophilic dermatosis
     Dosage: 50 MILLIGRAM, QD; 0.75?MG/KG
     Route: 065
  2. PREDNISONE [Suspect]
     Active Substance: PREDNISONE
     Indication: Disease recurrence
     Route: 065
  3. GILTERITINIB [Concomitant]
     Active Substance: GILTERITINIB
     Indication: Acute myeloid leukaemia
     Route: 065
  4. GILTERITINIB [Concomitant]
     Active Substance: GILTERITINIB
     Indication: FLT3 gene mutation
     Route: 065
  5. IADADEMSTAT [Concomitant]
     Active Substance: IADADEMSTAT
     Indication: Acute myeloid leukaemia
     Route: 065
  6. IADADEMSTAT [Concomitant]
     Active Substance: IADADEMSTAT
     Indication: FLT3 gene mutation

REACTIONS (2)
  - Disease recurrence [Recovered/Resolved]
  - Rebound effect [Recovered/Resolved]
